FAERS Safety Report 8049069-6 (Version None)
Quarter: 2012Q1

REPORT INFORMATION
  Report Type: 
  Country: None (occurrence: None)
  Receive Date: 20120117
  Receipt Date: 20120109
  Transmission Date: 20120608
  Serious: Yes (Hospitalization)
  Sender: FDA-Public Use
  Company Number: US-JNJFOC-20120102749

PATIENT
  Sex: Male
  Weight: 57.3 kg

DRUGS (2)
  1. PIPERACILLIN AND TAZOBACTAM [Concomitant]
     Route: 042
  2. INFLIXIMAB, RECOMBINANT [Suspect]
     Indication: CROHN'S DISEASE
     Dosage: MOST RECENT INFUSION WAS ON 12-APR-2011
     Route: 042
     Dates: start: 20100831

REACTIONS (1)
  - ABSCESS [None]
